FAERS Safety Report 8623065-X (Version None)
Quarter: 2012Q3

REPORT INFORMATION
  Report Type: 
  Country: None (occurrence: None)
  Receive Date: 20120827
  Receipt Date: 20120821
  Transmission Date: 20120928
  Serious: Yes (Hospitalization, Other)
  Sender: FDA-Public Use
  Company Number: US-JNJFOC-20120811164

PATIENT
  Sex: Male
  Weight: 59.4 kg

DRUGS (33)
  1. MULTIVITAMIN [Concomitant]
  2. MODAFINIL [Concomitant]
  3. ATENOLOL [Concomitant]
  4. REMICADE [Suspect]
     Route: 042
     Dates: start: 20050807, end: 20120507
  5. BENADRYL [Concomitant]
     Indication: PREMEDICATION
  6. NALTREXONE HYDROCHLORIDE [Concomitant]
  7. XOPENEX [Concomitant]
  8. MIRALAX [Concomitant]
  9. REMICADE [Suspect]
     Route: 042
     Dates: start: 20080310
  10. IMMUNE GLOBULIN INTRAVENOUS (HUMAN) [Concomitant]
  11. CREATINE [Concomitant]
  12. FLUDROCORTISONE ACETATE [Concomitant]
  13. PULMICORT [Concomitant]
  14. MESALAMINE [Concomitant]
  15. SELENIUM [Concomitant]
  16. MIDODRINE HYDROCHLORIDE [Concomitant]
  17. COENZYME Q10 [Concomitant]
  18. NEXIUM [Concomitant]
  19. VITAMIN D [Concomitant]
  20. REMICADE [Suspect]
     Indication: CROHN'S DISEASE
     Route: 042
     Dates: start: 20080508
  21. GABAPENTIN [Concomitant]
  22. LIPOIC ACID [Concomitant]
  23. ONDANSETRON [Concomitant]
  24. RIBOFLAVIN CAP [Concomitant]
  25. ACETAMINOPHEN [Concomitant]
     Indication: PREMEDICATION
  26. E VITAMIN [Concomitant]
  27. MAGNESIUM CITRATE [Concomitant]
  28. CALCIUM CARBONATE [Concomitant]
  29. ASCORBIC ACID [Concomitant]
  30. REMICADE [Suspect]
     Route: 042
     Dates: start: 20080111
  31. FOLIC ACID [Concomitant]
  32. GLYCOLAX [Concomitant]
  33. LEVOCARNITINE [Concomitant]

REACTIONS (2)
  - INCISION SITE ABSCESS [None]
  - INFECTION [None]
